FAERS Safety Report 6114958-6 (Version None)
Quarter: 2009Q1

REPORT INFORMATION
  Report Type: 
  Country: None (occurrence: None)
  Receive Date: 20090311
  Receipt Date: 20080515
  Transmission Date: 20090719
  Serious: Yes (Other)
  Sender: FDA-Public Use
  Company Number: US200805004380

PATIENT
  Sex: Female

DRUGS (3)
  1. GEMZAR [Suspect]
     Indication: PANCREATIC CARCINOMA
     Dosage: RECEIVED THREE CYCLES FOR ADJUVANT SURGERY
     Dates: start: 20050101
  2. FLUOROURACIL [Concomitant]
  3. ... [Concomitant]

REACTIONS (1)
  - PANCREATIC CARCINOMA RECURRENT [None]
